FAERS Safety Report 18956638 (Version 3)
Quarter: 2021Q1

REPORT INFORMATION
  Report Type: Spontaneous
  Country: US (occurrence: US)
  Receive Date: 20210302
  Receipt Date: 20210319
  Transmission Date: 20210420
  Serious: Yes (Other)
  Sender: FDA-Public Use
  Company Number: US-ROCHE-2776245

PATIENT
  Sex: Male
  Weight: 81.72 kg

DRUGS (6)
  1. KLONOPIN [Suspect]
     Active Substance: CLONAZEPAM
     Indication: HEADACHE
     Route: 048
  2. KLONOPIN [Suspect]
     Active Substance: CLONAZEPAM
     Indication: NEUROLOGICAL SYMPTOM
     Route: 048
     Dates: start: 2017
  3. IMITREX [Concomitant]
     Active Substance: SUMATRIPTAN SUCCINATE
     Indication: CLUSTER HEADACHE
     Route: 058
  4. KLONOPIN [Suspect]
     Active Substance: CLONAZEPAM
     Indication: CLUSTER HEADACHE
  5. DIAZEPAM. [Suspect]
     Active Substance: DIAZEPAM
     Indication: RADICULOPATHY
     Route: 048
     Dates: start: 2016, end: 2017
  6. IMITREX [Concomitant]
     Active Substance: SUMATRIPTAN SUCCINATE

REACTIONS (5)
  - Intentional product use issue [Unknown]
  - Oral discharge [Unknown]
  - Impaired driving ability [Unknown]
  - Drooling [Unknown]
  - Poisoning [Recovered/Resolved]

NARRATIVE: CASE EVENT DATE: 2016
